FAERS Safety Report 6485765-X (Version None)
Quarter: 2009Q4

REPORT INFORMATION
  Report Type: 
  Country: None (occurrence: None)
  Receive Date: 20091204
  Receipt Date: 20091119
  Transmission Date: 20100525
  Serious: Yes (Hospitalization, Other)
  Sender: FDA-Public Use
  Company Number: AUR-APL-2009-01427

PATIENT
  Age: 65 Year
  Weight: 95.24 kg

DRUGS (7)
  1. SIMVASTATIN [Suspect]
     Indication: BLOOD CHOLESTEROL INCREASED
     Dosage: ORAL
     Route: 048
  2. ATORVASTATINN FILM-COATED TABLET (PFIZER) [Suspect]
     Indication: CARDIAC DISORDER
     Dosage: 40MG, DAILY, ORAL
     Route: 048
     Dates: start: 20070101, end: 20080101
  3. PRAVASTATIN [Suspect]
     Indication: BLOOD CHOLESTEROL INCREASED
     Dosage: 80MG, DAILY, ORAL
     Route: 048
  4. PLAVIX [Concomitant]
  5. METOPROLOL TARTRATE [Concomitant]
  6. ACETYLSALICYLIC ACID [Concomitant]
  7. METFORMIN HCL [Concomitant]

REACTIONS (9)
  - ASTHENIA [None]
  - CORONARY ARTERIAL STENT INSERTION [None]
  - DIZZINESS [None]
  - FEELING ABNORMAL [None]
  - HEADACHE [None]
  - MUSCLE DISORDER [None]
  - MYALGIA [None]
  - MYOCARDIAL INFARCTION [None]
  - NAUSEA [None]
